FAERS Safety Report 6594128-8 (Version None)
Quarter: 2010Q1

REPORT INFORMATION
  Report Type: 
  Country: None (occurrence: None)
  Receive Date: 20100222
  Receipt Date: 20100210
  Transmission Date: 20100710
  Serious: Yes (Hospitalization)
  Sender: FDA-Public Use
  Company Number: US-PFIZER INC-2010013685

PATIENT
  Sex: Female
  Weight: 59 kg

DRUGS (4)
  1. DETROL LA [Suspect]
     Indication: INCONTINENCE
     Dosage: 4 MG, 1X/DAY
     Route: 048
     Dates: start: 20090101, end: 20100101
  2. DETROL LA [Suspect]
     Indication: HYPERTONIC BLADDER
  3. EVISTA [Concomitant]
     Indication: OSTEOPOROSIS
     Dosage: 60 MG, 1X/DAY
     Route: 048
  4. VITAMINS [Concomitant]
     Dosage: UNK

REACTIONS (5)
  - DRUG INEFFECTIVE [None]
  - FALL [None]
  - INCONTINENCE [None]
  - LUNG DISORDER [None]
  - TRAUMATIC LUNG INJURY [None]
